FAERS Safety Report 8544075 (Version 5)
Quarter: 2013Q4

REPORT INFORMATION
  Report Type: Spontaneous
  Country: US (occurrence: None)
  Receive Date: 20120315
  Receipt Date: 20131226
  Transmission Date: 20140711
  Serious: Yes (Other)
  Sender: FDA-Public Use
  Company Number: PHHY2011US01982

PATIENT
  Age: 55 Year
  Sex: Female

DRUGS (2)
  1. FINGOLIMOD [Suspect]
     Indication: RELAPSING-REMITTING MULTIPLE SCLEROSIS
     Dosage: 0.5 MG, DAILY, ORAL, 0.5 MG, QOD, ORAL
     Route: 048
     Dates: start: 20110106, end: 20110220
  2. AMPYRA [Concomitant]

REACTIONS (6)
  - Hypertension [None]
  - Vertigo [None]
  - Nausea [None]
  - Incorrect dose administered [None]
  - Dizziness [None]
  - Inappropriate schedule of drug administration [None]
